FAERS Safety Report 15273095 (Version 2)
Quarter: 2019Q1

REPORT INFORMATION
  Report Type: Spontaneous
  Country: US (occurrence: US)
  Receive Date: 20180813
  Receipt Date: 20190213
  Transmission Date: 20190417
  Serious: Yes (Other)
  Sender: FDA-Public Use
  Company Number: US-PURDUE-USA-2018-0144208

PATIENT
  Age: 51 Year
  Sex: Female
  Weight: 56.69 kg

DRUGS (24)
  1. VITAMIN D3 [Concomitant]
     Active Substance: CHOLECALCIFEROL
     Indication: UNEVALUABLE EVENT
     Dosage: 3000 IU, UNK
  2. ESTRADIOL. [Concomitant]
     Active Substance: ESTRADIOL
     Indication: HOT FLUSH
  3. BENADRYL [Concomitant]
     Active Substance: DIPHENHYDRAMINE HYDROCHLORIDE
     Indication: PRURITUS
  4. XANAX [Concomitant]
     Active Substance: ALPRAZOLAM
     Indication: ANXIETY
     Dosage: 0.25 MG, PRN
  5. OXYGEN. [Concomitant]
     Active Substance: OXYGEN
     Indication: APNOEA
     Dosage: 4 UNK, UNK
  6. BUPROPION. [Concomitant]
     Active Substance: BUPROPION
     Indication: DEPRESSION
     Dosage: 250 MG, UNK
  7. BUTRANS [Suspect]
     Active Substance: BUPRENORPHINE
     Dosage: 5 OR 10 MCG/HR, WEEKLY
     Route: 062
     Dates: start: 2016, end: 2016
  8. IBUPROFEN. [Concomitant]
     Active Substance: IBUPROFEN
     Indication: PRODUCT USED FOR UNKNOWN INDICATION
     Route: 048
  9. OXYMORPHONE HYDROCHLORIDE. [Concomitant]
     Active Substance: OXYMORPHONE HYDROCHLORIDE
     Indication: PAIN
     Dosage: 2.5 MG, BID
  10. BENADRYL [Concomitant]
     Active Substance: DIPHENHYDRAMINE HYDROCHLORIDE
     Indication: HOT FLUSH
  11. BUTRANS [Suspect]
     Active Substance: BUPRENORPHINE
     Indication: PAIN
     Dosage: 5 MCG/HR, QOD
     Route: 062
     Dates: start: 20180621, end: 20180715
  12. XANAX [Concomitant]
     Active Substance: ALPRAZOLAM
     Indication: PAIN
  13. BUPROPION. [Concomitant]
     Active Substance: BUPROPION
     Indication: POST-TRAUMATIC STRESS DISORDER
  14. BENADRYL [Concomitant]
     Active Substance: DIPHENHYDRAMINE HYDROCHLORIDE
     Indication: HYPERSENSITIVITY
  15. XANAX [Concomitant]
     Active Substance: ALPRAZOLAM
     Indication: POST-TRAUMATIC STRESS DISORDER
  16. CANNABIS [Concomitant]
     Active Substance: CANNABIS SATIVA SUBSP. INDICA TOP
     Indication: POST-TRAUMATIC STRESS DISORDER
     Dosage: 2 ML, PRN
  17. ACETAMINOPHEN AND CODEINE [Concomitant]
     Active Substance: ACETAMINOPHEN\CODEINE PHOSPHATE
     Indication: HEADACHE
  18. OXYGEN. [Concomitant]
     Active Substance: OXYGEN
     Indication: FATIGUE
  19. VITAMIN C [Concomitant]
     Active Substance: ASCORBIC ACID
     Indication: ANTIOXIDANT THERAPY
     Dosage: 2000 MG, UNK
  20. DHEA [Concomitant]
     Active Substance: PRASTERONE
     Indication: UNEVALUABLE EVENT
     Dosage: 50 MG, UNK
  21. MIRALAX [Concomitant]
     Active Substance: POLYETHYLENE GLYCOL 3350
     Indication: LAXATIVE SUPPORTIVE CARE
     Dosage: 17 G, UNK
  22. BUTRANS [Suspect]
     Active Substance: BUPRENORPHINE
     Dosage: 5 MCG/HR, WEEKLY
     Route: 062
  23. CANNABIS [Concomitant]
     Active Substance: CANNABIS SATIVA SUBSP. INDICA TOP
     Indication: UNEVALUABLE EVENT
  24. CANNABIS [Concomitant]
     Active Substance: CANNABIS SATIVA SUBSP. INDICA TOP
     Indication: APNOEA

REACTIONS (4)
  - Skin lesion [Not Recovered/Not Resolved]
  - Drug effect decreased [Not Recovered/Not Resolved]
  - Respiratory distress [Unknown]
  - Product prescribing error [Unknown]

NARRATIVE: CASE EVENT DATE: 2016
